FAERS Safety Report 8990639 (Version 1)
Quarter: 2012Q4

REPORT INFORMATION
  Report Type: 
  Country: AU (occurrence: AU)
  Receive Date: 20121228
  Receipt Date: 20121228
  Transmission Date: 20130627
  Serious: Yes (Life-Threatening, Hospitalization)
  Sender: FDA-Public Use
  Company Number: AU-GENZYME-POMP-1002693

PATIENT
  Sex: Male
  Weight: 10 kg

DRUGS (2)
  1. MYOZYME [Suspect]
     Indication: GLYCOGEN STORAGE DISEASE TYPE II
     Dosage: 20 mg/kg, q2w
     Route: 042
  2. RITUXIMAB [Concomitant]
     Indication: IMMUNOMODULATORY THERAPY

REACTIONS (1)
  - Disease progression [Not Recovered/Not Resolved]
